FAERS Safety Report 6569881-X (Version None)
Quarter: 2010Q1

REPORT INFORMATION
  Report Type: 
  Country: None (occurrence: None)
  Receive Date: 20100204
  Receipt Date: 20100126
  Transmission Date: 20100710
  Serious: Yes (Other)
  Sender: FDA-Public Use
  Company Number: PHHY2010GR02809

PATIENT
  Age: 63 Year
  Sex: Female

DRUGS (3)
  1. RASILEZ [Suspect]
     Indication: HYPERTENSION
     Dosage: 150 MG, DAILY
     Dates: start: 20100120
  2. LEXOTANIL [Concomitant]
  3. DRUG THERAPY NOS [Concomitant]
     Indication: ASTHMA
     Dosage: UNK

REACTIONS (4)
  - DYSPNOEA [None]
  - OEDEMA PERIPHERAL [None]
  - RASH [None]
  - TACHYCARDIA [None]
